FAERS Safety Report 7949805-0 (Version None)
Quarter: 2011Q4

REPORT INFORMATION
  Report Type: 
  Country: None (occurrence: None)
  Receive Date: 20111130
  Receipt Date: 20111128
  Transmission Date: 20120403
  Serious: Yes (Disabling)
  Sender: FDA-Public Use
  Company Number: GB-MERCK-1111GBR00047

PATIENT
  Age: 79 Year
  Sex: Female
  Weight: 62 kg

DRUGS (7)
  1. CHLORHEXIDINE GLUCONATE [Concomitant]
     Route: 065
     Dates: start: 20111026
  2. FOSAMAX [Suspect]
     Route: 048
     Dates: start: 20111026
  3. FENTANYL [Concomitant]
     Route: 065
     Dates: start: 20110713
  4. PREDNISOLONE [Concomitant]
     Route: 065
     Dates: start: 20110914
  5. FUROSEMIDE [Concomitant]
     Route: 065
     Dates: start: 20110914
  6. BECLOMETHASONE DIPROPIONATE [Concomitant]
     Route: 065
     Dates: start: 20110713, end: 20111021
  7. BISOPROLOL [Concomitant]
     Route: 065
     Dates: start: 20110607

REACTIONS (1)
  - OSTEONECROSIS [None]
